FAERS Safety Report 10022270 (Version 1)
Quarter: 2014Q1

REPORT INFORMATION
  Report Type: Report from Study
  Country: US (occurrence: US)
  Receive Date: 20140319
  Receipt Date: 20140319
  Transmission Date: 20141002
  Serious: Yes (Hospitalization)
  Sender: FDA-Public Use
  Company Number: US-BRISTOL-MYERS SQUIBB COMPANY-20418208

PATIENT
  Age: 44 Year
  Sex: Female
  Weight: 101.58 kg

DRUGS (3)
  1. ORENCIA FOR INJ [Suspect]
     Indication: RHEUMATOID ARTHRITIS
     Dosage: STARTED ON INFUSIONS EVERY 2 WEEKS.
     Route: 042
  2. TYLENOL [Concomitant]
  3. BENADRYL [Concomitant]

REACTIONS (6)
  - Back disorder [Unknown]
  - Drug ineffective [Unknown]
  - Erythema [Unknown]
  - Feeling hot [Unknown]
  - Malaise [Unknown]
  - Injection site extravasation [Unknown]
